FAERS Safety Report 5239339-9 (Version None)
Quarter: 2007Q1

REPORT INFORMATION
  Report Type: 
  Country: None (occurrence: None)
  Receive Date: 20070214
  Receipt Date: 20070214
  Transmission Date: 20070707
  Serious: Yes (Hospitalization)
  Sender: FDA-Public Use
  Company Number: None

PATIENT
  Age: 75 Year
  Sex: Male
  Weight: 98 kg

DRUGS (10)
  1. WARFARIN SODIUM [Suspect]
     Indication: ATRIAL FIBRILLATION
     Dosage: 2.5MG DAILY PO
     Route: 048
     Dates: start: 19940101, end: 20070212
  2. ALLOPURINOL SODIUM [Concomitant]
  3. BUMETANIDE [Concomitant]
  4. DIGOXIN [Concomitant]
  5. LISINOPRIL [Concomitant]
  6. OMEPRAZOLE [Concomitant]
  7. VERAPAMIL [Concomitant]
  8. WARFARIN SODIUM [Concomitant]
  9. NIFEREX [Concomitant]
  10. ASCORBIC ACID [Concomitant]

REACTIONS (4)
  - FAECES DISCOLOURED [None]
  - HAEMATOCRIT DECREASED [None]
  - MALAISE [None]
  - OCCULT BLOOD POSITIVE [None]
